FAERS Safety Report 6279960-2 (Version None)
Quarter: 2009Q3

REPORT INFORMATION
  Report Type: 
  Country: None (occurrence: None)
  Receive Date: 20090723
  Receipt Date: 20090331
  Transmission Date: 20100115
  Serious: No
  Sender: FDA-Public Use
  Company Number: US-AMGEN-KDL333100

PATIENT
  Age: 90 Year
  Sex: Male

DRUGS (3)
  1. PROCRIT [Suspect]
     Indication: RENAL FAILURE CHRONIC
  2. IRON [Concomitant]
     Dates: start: 20080101
  3. MULTI-VITAMINS [Concomitant]
     Dates: start: 20080101

REACTIONS (2)
  - ANAEMIA [None]
  - RED BLOOD CELL COUNT INCREASED [None]
